FAERS Safety Report 6801954-6 (Version None)
Quarter: 2010Q2

REPORT INFORMATION
  Report Type: 
  Country: None (occurrence: None)
  Receive Date: 20100629
  Receipt Date: 20100618
  Transmission Date: 20101027
  Serious: Yes (Life-Threatening, Hospitalization)
  Sender: FDA-Public Use
  Company Number: HU-ELI_LILLY_AND_COMPANY-HU201006007344

PATIENT
  Sex: Male
  Weight: 99 kg

DRUGS (3)
  1. GEMCITABINE HYDROCHLORIDE [Suspect]
     Indication: NON-SMALL CELL LUNG CANCER
     Dosage: 2625 MG, TWICE IN 3 WEEKS
     Route: 042
     Dates: start: 20100330
  2. OTHER PHARMA COMPANY INV DRUG [Suspect]
     Indication: NON-SMALL CELL LUNG CANCER
     Dosage: 800 MG, TWICE IN 3 WEEKS
     Route: 042
     Dates: start: 20100330
  3. CISPLATIN [Suspect]
     Indication: NON-SMALL CELL LUNG CANCER
     Dosage: 157 MG, ONCE IN 3 WEEKS
     Route: 042
     Dates: start: 20100330

REACTIONS (6)
  - ANAEMIA [None]
  - ASTHENIA [None]
  - HYPERURICAEMIA [None]
  - LEUKOPENIA [None]
  - THROMBOCYTOPENIA [None]
  - UNEVALUABLE EVENT [None]
